FAERS Safety Report 9407636 (Version 1)
Quarter: 2013Q3

REPORT INFORMATION
  Report Type: Spontaneous
  Country: US (occurrence: None)
  Receive Date: 20130717
  Receipt Date: 20130717
  Transmission Date: 20140515
  Serious: Yes (Hospitalization, Other)
  Sender: FDA-Public Use
  Company Number: None

PATIENT
  Age: 22 Year
  Sex: Female

DRUGS (7)
  1. LAMICTAL [Suspect]
     Indication: MAJOR DEPRESSION
     Route: 048
     Dates: start: 201011, end: 201102
  2. LAMICTAL [Suspect]
     Indication: ANXIETY
     Route: 048
     Dates: start: 201011, end: 201102
  3. ATIVAN [Suspect]
     Indication: MAJOR DEPRESSION
     Route: 048
     Dates: start: 201011, end: 201102
  4. ATIVAN [Suspect]
     Indication: ANXIETY
     Route: 048
     Dates: start: 201011, end: 201102
  5. PAXIL [Suspect]
     Indication: MAJOR DEPRESSION
     Route: 048
     Dates: start: 201011, end: 201102
  6. PAXIL [Suspect]
     Indication: ANXIETY
     Route: 048
     Dates: start: 201011, end: 201102
  7. IDRASIL 25MG [Concomitant]

REACTIONS (2)
  - Completed suicide [None]
  - Major depression [None]
